FAERS Safety Report 7429079-X (Version None)
Quarter: 2011Q2

REPORT INFORMATION
  Report Type: 
  Country: None (occurrence: None)
  Receive Date: 20110414
  Receipt Date: 20110331
  Transmission Date: 20111010
  Serious: Yes (Other)
  Sender: FDA-Public Use
  Company Number: 8033303

PATIENT
  Sex: Male

DRUGS (8)
  1. LAMICTAL [Concomitant]
  2. LIPITOR [Concomitant]
  3. MINOCYCLINE [Concomitant]
  4. VISTARIL [Concomitant]
  5. KEPPRA [Suspect]
     Indication: MOOD SWINGS
     Dosage: (1250 MG, DOSE FREQ.: DAILY ORAL) ; (1500 MG, DOSE FREQ.: DAILY ORAL)
     Route: 048
     Dates: start: 20060101
  6. KEPPRA [Suspect]
     Indication: BIPOLAR DISORDER
     Dosage: (1250 MG, DOSE FREQ.: DAILY ORAL) ; (1500 MG, DOSE FREQ.: DAILY ORAL)
     Route: 048
     Dates: start: 20060101
  7. KEPPRA [Suspect]
     Indication: MOOD SWINGS
     Dosage: (1250 MG, DOSE FREQ.: DAILY ORAL) ; (1500 MG, DOSE FREQ.: DAILY ORAL)
     Route: 048
     Dates: start: 20050301, end: 20060101
  8. KEPPRA [Suspect]
     Indication: BIPOLAR DISORDER
     Dosage: (1250 MG, DOSE FREQ.: DAILY ORAL) ; (1500 MG, DOSE FREQ.: DAILY ORAL)
     Route: 048
     Dates: start: 20050301, end: 20060101

REACTIONS (4)
  - POSTMATURE BABY [None]
  - MATERNAL DRUGS AFFECTING FOETUS [None]
  - SPEECH DISORDER DEVELOPMENTAL [None]
  - DEVELOPMENTAL DELAY [None]
